FAERS Safety Report 9039571 (Version 1)
Quarter: 2013Q1

REPORT INFORMATION
  Report Type: Spontaneous
  Country: US (occurrence: US)
  Receive Date: 20130129
  Receipt Date: 20130129
  Transmission Date: 20140127
  Serious: No
  Sender: FDA-Public Use
  Company Number: US-ABBOTT-12P-163-0941560-00

PATIENT
  Sex: Female
  Weight: 57.66 kg

DRUGS (6)
  1. HUMIRA 40 MG/0.8 ML PEN [Suspect]
     Indication: PSORIATIC ARTHROPATHY
     Route: 058
     Dates: start: 201205
  2. HUMIRA 40 MG/0.8 ML PEN [Suspect]
     Indication: PSORIASIS
  3. IMURAN [Concomitant]
     Indication: PRODUCT USED FOR UNKNOWN INDICATION
  4. MESTINON [Concomitant]
     Indication: MYASTHENIA GRAVIS
  5. TOPROL XL [Concomitant]
     Indication: PRODUCT USED FOR UNKNOWN INDICATION
  6. DEXILANT [Concomitant]
     Indication: GASTROOESOPHAGEAL REFLUX DISEASE

REACTIONS (3)
  - Bone pain [Not Recovered/Not Resolved]
  - Drug dose omission [Not Recovered/Not Resolved]
  - Device malfunction [Unknown]
